FAERS Safety Report 23678657 (Version 1)
Quarter: 2024Q1

REPORT INFORMATION
  Report Type: Spontaneous
  Country: DE (occurrence: DE)
  Receive Date: 20240327
  Receipt Date: 20240327
  Transmission Date: 20240409
  Serious: Yes (Hospitalization, Other)
  Sender: FDA-Public Use
  Company Number: DE-MALLINCKRODT-MNK202402093

PATIENT
  Age: 68 Year
  Sex: Male

DRUGS (6)
  1. UVADEX [Suspect]
     Active Substance: METHOXSALEN
     Indication: Acute graft versus host disease in intestine
     Dosage: UNKNOWN
     Route: 050
  2. TACROLIMUS [Concomitant]
     Active Substance: TACROLIMUS
     Dosage: UNKNOWN
  3. PREDNISOLONE [Concomitant]
     Active Substance: PREDNISOLONE
  4. PREDNISOLONE [Concomitant]
     Active Substance: PREDNISOLONE
     Dosage: TAPERING DOSE
  5. BUDESONIDE [Concomitant]
     Active Substance: BUDESONIDE
     Dosage: UNKNOWN
  6. RUXOLITINIB [Concomitant]
     Active Substance: RUXOLITINIB
     Dosage: UNKNOWN

REACTIONS (9)
  - Escherichia bacteraemia [Unknown]
  - Hyponatraemia [Unknown]
  - Dehydration [Unknown]
  - Adenovirus infection [Unknown]
  - Cytomegalovirus infection [Unknown]
  - Peritonitis [Unknown]
  - Acute graft versus host disease [Unknown]
  - Disease progression [Unknown]
  - Product use in unapproved indication [Unknown]
